FAERS Safety Report 5495055-X (Version None)
Quarter: 2007Q4

REPORT INFORMATION
  Report Type: 
  Country: None (occurrence: None)
  Receive Date: 20071024
  Receipt Date: 20071016
  Transmission Date: 20080405
  Serious: Yes (Life-Threatening, Hospitalization)
  Sender: FDA-Public Use
  Company Number: GB-RANBAXY-2007RR-10643

PATIENT

DRUGS (2)
  1. RANITIDINE HCL [Suspect]
     Indication: ABDOMINAL PAIN UPPER
     Dosage: 50 MG, QD
     Route: 042
  2. RANITIDINE HCL [Suspect]
     Indication: PANCREATITIS

REACTIONS (2)
  - ANAPHYLACTIC REACTION [None]
  - CARDIO-RESPIRATORY ARREST [None]
